FAERS Safety Report 6333281-8 (Version None)
Quarter: 2009Q3

REPORT INFORMATION
  Report Type: 
  Country: None (occurrence: None)
  Receive Date: 20090828
  Receipt Date: 20090817
  Transmission Date: 20100115
  Serious: Yes (Hospitalization, Congenital Anomaly)
  Sender: FDA-Public Use
  Company Number: SE-WYE-G04298609

PATIENT
  Age: 1 Day
  Sex: Male

DRUGS (1)
  1. EFFEXOR [Suspect]
     Indication: DEPRESSION
     Route: 048

REACTIONS (6)
  - CONGENITAL OESOPHAGEAL ANOMALY [None]
  - DRUG EXPOSURE DURING PREGNANCY [None]
  - DRUG EXPOSURE VIA BREAST MILK [None]
  - PREMATURE BABY [None]
  - RESPIRATORY TRACT MALFORMATION [None]
  - TRACHEO-OESOPHAGEAL FISTULA [None]
